FAERS Safety Report 17433312 (Version 1)
Quarter: 2020Q1

REPORT INFORMATION
  Report Type: Spontaneous
  Country: ES (occurrence: ES)
  Receive Date: 20200219
  Receipt Date: 20200219
  Transmission Date: 20200409
  Serious: Yes (Hospitalization, Other)
  Sender: FDA-Public Use
  Company Number: ES-AUROBINDO-AUR-APL-2020-008348

PATIENT
  Age: 40 Year
  Sex: Female

DRUGS (6)
  1. CLOZAPINE. [Suspect]
     Active Substance: CLOZAPINE
     Indication: PRODUCT USED FOR UNKNOWN INDICATION
     Dosage: 200 MILLIGRAM (1 TOTAL)
     Route: 048
     Dates: start: 20191001, end: 20191010
  2. CLOZAPINE. [Concomitant]
     Active Substance: CLOZAPINE
     Indication: PRODUCT USED FOR UNKNOWN INDICATION
     Dosage: 200 MILLIGRAM, ONCE A DAY
     Route: 048
     Dates: start: 201510, end: 20190930
  3. CLONAZEPAM. [Interacting]
     Active Substance: CLONAZEPAM
     Indication: PRODUCT USED FOR UNKNOWN INDICATION
     Dosage: 3 MILLIGRAM (1 TOTAL)
     Route: 048
     Dates: start: 20191001, end: 20191001
  4. CLOMIPRAMINE HYDROCHLORIDE. [Interacting]
     Active Substance: CLOMIPRAMINE HYDROCHLORIDE
     Indication: PRODUCT USED FOR UNKNOWN INDICATION
     Dosage: 112 MILLIGRAM (1 TOTAL)
     Route: 048
     Dates: start: 20191001, end: 20191001
  5. PLENUR [LITHIUM CARBONATE] [Interacting]
     Active Substance: LITHIUM CARBONATE
     Indication: PRODUCT USED FOR UNKNOWN INDICATION
     Dosage: 7 GRAM (1 TOTAL)
     Route: 048
     Dates: start: 20191001, end: 20191001
  6. PLENUR [Concomitant]
     Indication: PRODUCT USED FOR UNKNOWN INDICATION
     Dosage: 1 GRAM, ONCE A DAY
     Route: 048
     Dates: start: 201301, end: 20190930

REACTIONS (2)
  - Depressed level of consciousness [Recovered/Resolved]
  - Antipsychotic drug level increased [Recovered/Resolved]

NARRATIVE: CASE EVENT DATE: 20191001
